FAERS Safety Report 4802235-2 (Version None)
Quarter: 2005Q4

REPORT INFORMATION
  Report Type: 
  Country: None (occurrence: None)
  Receive Date: 20051012
  Receipt Date: 20050927
  Transmission Date: 20060501
  Serious: Yes (Death, Hospitalization)
  Sender: FDA-Public Use
  Company Number: 198120

PATIENT
  Age: 52 Year
  Sex: Female
  Weight: 56.6996 kg

DRUGS (11)
  1. AVONEX [Suspect]
     Indication: MULTIPLE SCLEROSIS
     Dosage: 30 UG; QW; IM
     Route: 030
     Dates: start: 20001201, end: 20020201
  2. ZOCOR [Concomitant]
  3. BETASERON [Concomitant]
  4. STEROIDS [Concomitant]
  5. ATIVAN [Concomitant]
  6. COLACE [Concomitant]
  7. COMPAZINE [Concomitant]
  8. OXYCODONE [Concomitant]
  9. OXYCONTIN [Concomitant]
  10. PREVACID [Concomitant]
  11. PREDNISONE [Concomitant]

REACTIONS (9)
  - ABDOMINAL PAIN [None]
  - ADRENAL GLAND CANCER METASTATIC [None]
  - ARTHRITIS [None]
  - DECUBITUS ULCER [None]
  - DYSPEPSIA [None]
  - GASTROINTESTINAL DISORDER [None]
  - INFLUENZA LIKE ILLNESS [None]
  - LUNG ADENOCARCINOMA [None]
  - RASH [None]
